FAERS Safety Report 26049391 (Version 2)
Quarter: 2025Q4

REPORT INFORMATION
  Report Type: Report from Study
  Country: US (occurrence: US)
  Receive Date: 20251115
  Receipt Date: 20251120
  Transmission Date: 20260117
  Serious: Yes (Other)
  Sender: ABBVIE
  Company Number: US-ABBVIE-6544849

PATIENT
  Age: 49 Year
  Sex: Female

DRUGS (4)
  1. RINVOQ [Suspect]
     Active Substance: UPADACITINIB
     Indication: Psoriatic arthropathy
     Dosage: START DATE: 2025
     Route: 048
     Dates: end: 20251013
  2. RINVOQ [Suspect]
     Active Substance: UPADACITINIB
     Indication: Psoriatic arthropathy
     Route: 048
     Dates: start: 20251025
  3. RINVOQ [Suspect]
     Active Substance: UPADACITINIB
     Indication: Psoriatic arthropathy
     Dosage: STRENGTH-15MG?STOP DATE: 2025
     Route: 048
     Dates: start: 202509
  4. Cosentyx unoready [Concomitant]
     Indication: Product used for unknown indication
     Dosage: PEN (1/PK)

REACTIONS (4)
  - Surgery [Not Recovered/Not Resolved]
  - Pain [Not Recovered/Not Resolved]
  - Clumsiness [Not Recovered/Not Resolved]
  - Grip strength decreased [Unknown]

NARRATIVE: CASE EVENT DATE: 20250101
